FAERS Safety Report 16904338 (Version 1)
Quarter: 2019Q4

REPORT INFORMATION
  Report Type: Spontaneous
  Country: GB (occurrence: GB)
  Receive Date: 20191010
  Receipt Date: 20191010
  Transmission Date: 20200122
  Serious: Yes (Other)
  Sender: FDA-Public Use
  Company Number: GB-JNJFOC-20190939793

PATIENT

DRUGS (2)
  1. STELARA [Suspect]
     Active Substance: USTEKINUMAB
     Indication: CROHN^S DISEASE
     Route: 058
  2. STELARA [Suspect]
     Active Substance: USTEKINUMAB
     Route: 058

REACTIONS (10)
  - Small intestinal resection [Unknown]
  - Infection [Unknown]
  - Gastrointestinal stoma complication [Unknown]
  - Wound haemorrhage [Unknown]
  - Testicular neoplasm [Unknown]
  - Arthralgia [Unknown]
  - Jejunectomy [Unknown]
  - Fistula repair [Unknown]
  - Therapy non-responder [Unknown]
  - Generalised tonic-clonic seizure [Unknown]
